FAERS Safety Report 7920056-9 (Version None)
Quarter: 2011Q4

REPORT INFORMATION
  Report Type: 
  Country: None (occurrence: None)
  Receive Date: 20111115
  Receipt Date: 20111102
  Transmission Date: 20120403
  Serious: Yes (Death)
  Sender: FDA-Public Use
  Company Number: 1000025409

PATIENT

DRUGS (1)
  1. DINOPROSTONE (DINOPROSTONE) (VAGINAL INSERT) [Suspect]
     Dosage: 10 MG (10 MG), TRANSPLACENTAL
     Route: 064
     Dates: start: 20110101, end: 20110101

REACTIONS (4)
  - PREMATURE SEPARATION OF PLACENTA [None]
  - MATERNAL DRUGS AFFECTING FOETUS [None]
  - INTRA-UTERINE DEATH [None]
  - FOETAL DISTRESS SYNDROME [None]
